FAERS Safety Report 26125237 (Version 1)
Quarter: 2025Q4

REPORT INFORMATION
  Report Type: Spontaneous
  Country: JP (occurrence: JP)
  Receive Date: 20251205
  Receipt Date: 20251205
  Transmission Date: 20260118
  Serious: Yes (Death, Other)
  Sender: ROCHE
  Company Number: JP-CHUGAI-2025038928

PATIENT
  Age: 8 Decade
  Sex: Male

DRUGS (14)
  1. ACTEMRA [Suspect]
     Active Substance: TOCILIZUMAB
     Indication: Immune system disorder
     Dosage: UNK
     Route: 065
  2. ACTEMRA [Suspect]
     Active Substance: TOCILIZUMAB
     Indication: Myocarditis
  3. ACTEMRA [Suspect]
     Active Substance: TOCILIZUMAB
     Indication: Muscle disorder
  4. ACTEMRA [Suspect]
     Active Substance: TOCILIZUMAB
     Indication: Respiratory failure
  5. CELLCEPT [Suspect]
     Active Substance: MYCOPHENOLATE MOFETIL
     Indication: Immune system disorder
     Dosage: UNK
     Route: 048
  6. CELLCEPT [Suspect]
     Active Substance: MYCOPHENOLATE MOFETIL
     Indication: Myocarditis
  7. CELLCEPT [Suspect]
     Active Substance: MYCOPHENOLATE MOFETIL
     Indication: Muscle disorder
  8. CELLCEPT [Suspect]
     Active Substance: MYCOPHENOLATE MOFETIL
     Indication: Respiratory failure
  9. HUMAN IMMUNOGLOBULIN G [Concomitant]
     Active Substance: HUMAN IMMUNOGLOBULIN G
     Indication: Muscle disorder
     Dosage: UNK
     Route: 065
  10. HUMAN IMMUNOGLOBULIN G [Concomitant]
     Active Substance: HUMAN IMMUNOGLOBULIN G
     Indication: Myocarditis
  11. HUMAN IMMUNOGLOBULIN G [Concomitant]
     Active Substance: HUMAN IMMUNOGLOBULIN G
     Indication: Muscle disorder
  12. HUMAN IMMUNOGLOBULIN G [Concomitant]
     Active Substance: HUMAN IMMUNOGLOBULIN G
     Indication: Respiratory failure
  13. DURVALUMAB [Concomitant]
     Active Substance: DURVALUMAB
     Indication: Hepatocellular carcinoma
     Dosage: UNK
     Route: 065
  14. TREMELIMUMAB [Concomitant]
     Active Substance: TREMELIMUMAB
     Indication: Hepatocellular carcinoma
     Dosage: UNK
     Route: 065

REACTIONS (6)
  - Septic shock [Fatal]
  - Pneumonia aspiration [Unknown]
  - Cytomegalovirus infection [Unknown]
  - Small intestinal perforation [Unknown]
  - Blood beta-D-glucan positive [Unknown]
  - Off label use [Unknown]
